FAERS Safety Report 9002127 (Version 1)
Quarter: 2013Q1

REPORT INFORMATION
  Report Type: Spontaneous
  Country: US (occurrence: None)
  Receive Date: 20130103
  Receipt Date: 20130103
  Transmission Date: 20140127
  Serious: Yes (Other)
  Sender: FDA-Public Use
  Company Number: None

PATIENT
  Age: 53 Year
  Sex: Female
  Weight: 94.35 kg

DRUGS (2)
  1. DOXYCYCLINE HYCLATE [Suspect]
     Indication: SINUSITIS
     Dosage: 1   2 X^S A DAY  10 DAYS
     Dates: start: 20121215
  2. CLINDAMYCIN [Suspect]
     Indication: SINUSITIS
     Dosage: 1   3 X^S A DAY  10 DAYS
     Dates: start: 20121215, end: 20121227

REACTIONS (4)
  - Chest pain [None]
  - Dyspnoea [None]
  - Nausea [None]
  - Pain [None]
